FAERS Safety Report 15055862 (Version 4)
Quarter: 2018Q3

REPORT INFORMATION
  Report Type: Report from Study
  Country: CL (occurrence: CL)
  Receive Date: 20180622
  Receipt Date: 20180910
  Transmission Date: 20181010
  Serious: Yes (Hospitalization)
  Sender: FDA-Public Use
  Company Number: CL-BRISTOL-MYERS SQUIBB COMPANY-BMS-2018-055213

PATIENT
  Sex: Male

DRUGS (1)
  1. NIVOLUMAB [Suspect]
     Active Substance: NIVOLUMAB
     Indication: RENAL CANCER
     Dosage: 200 MG, Q2WK
     Route: 042
     Dates: start: 20161116

REACTIONS (4)
  - Bladder disorder [Recovering/Resolving]
  - Cholelithiasis [Unknown]
  - Nodule [Recovering/Resolving]
  - Drug ineffective [Recovered/Resolved]
